FAERS Safety Report 4777659-2 (Version None)
Quarter: 2005Q3

REPORT INFORMATION
  Report Type: 
  Country: None (occurrence: None)
  Receive Date: 20050923
  Receipt Date: 20050921
  Transmission Date: 20060218
  Serious: Yes (Hospitalization)
  Sender: FDA-Public Use
  Company Number: US-MERCK-0509USA03095

PATIENT
  Age: 68 Year
  Sex: Female

DRUGS (3)
  1. FOSAMAX [Suspect]
     Indication: OSTEOPOROSIS
     Route: 048
     Dates: start: 20050908, end: 20050912
  2. PRINIVIL [Concomitant]
     Route: 048
  3. PLAVIX [Concomitant]
     Route: 065

REACTIONS (2)
  - HYPERSENSITIVITY [None]
  - URINARY TRACT INFECTION [None]
